FAERS Safety Report 19107030 (Version 1)
Quarter: 2021Q2

REPORT INFORMATION
  Report Type: Spontaneous
  Country: US (occurrence: US)
  Receive Date: 20210407
  Receipt Date: 20210407
  Transmission Date: 20210717
  Serious: Yes (Hospitalization)
  Sender: FDA-Public Use
  Company Number: None

PATIENT
  Age: 42 Year
  Sex: Male

DRUGS (4)
  1. ALTERA HANDSET (NO COST) GILEAD PARI RESPIRATORY [Suspect]
     Active Substance: DEVICE
     Indication: CYSTIC FIBROSIS
     Dates: start: 201910
  2. PULMOZYME [Suspect]
     Active Substance: DORNASE ALFA
     Indication: CYSTIC FIBROSIS
     Dates: start: 201910
  3. ALTERA HANDSET (NO COST) GILEAD PARI RESPIRATORY [Suspect]
     Active Substance: DEVICE
     Indication: PNEUMONIA
     Dates: start: 201910
  4. PULMOZYME [Suspect]
     Active Substance: DORNASE ALFA
     Indication: PNEUMONIA
     Dates: start: 201910

REACTIONS (2)
  - Headache [None]
  - Dizziness [None]

NARRATIVE: CASE EVENT DATE: 20210403
